FAERS Safety Report 24128564 (Version 1)
Quarter: 2024Q3

REPORT INFORMATION
  Report Type: Spontaneous
  Country: US (occurrence: None)
  Receive Date: 20240722
  Receipt Date: 20240722
  Transmission Date: 20241016
  Serious: Yes (Disabling)
  Sender: Public
  Company Number: None

PATIENT
  Age: 60 Year
  Sex: Female
  Weight: 111.15 kg

DRUGS (9)
  1. PAXLOVID [Suspect]
     Active Substance: NIRMATRELVIR\RITONAVIR
     Indication: COVID-19
     Dosage: 3 TABLETS TWICE A DAY ORAL
     Route: 048
     Dates: start: 20240721, end: 20240722
  2. CALCITRIOL [Concomitant]
     Active Substance: CALCITRIOL
  3. budesonide-fumoterol [Concomitant]
  4. ALBUTEROL [Concomitant]
     Active Substance: ALBUTEROL
  5. VITAMIN E [Concomitant]
     Active Substance: .ALPHA.-TOCOPHEROL
  6. VITAMIN D [Concomitant]
     Active Substance: VITAMIN D NOS
  7. IRON\VITAMINS [Concomitant]
     Active Substance: IRON\VITAMINS
  8. ZYRTEC [Concomitant]
     Active Substance: CETIRIZINE HYDROCHLORIDE
  9. FAMOTIDINE [Concomitant]
     Active Substance: FAMOTIDINE

REACTIONS (4)
  - Nausea [None]
  - Abdominal pain upper [None]
  - Vomiting [None]
  - Diarrhoea [None]

NARRATIVE: CASE EVENT DATE: 20240722
